FAERS Safety Report 9507889 (Version 2)
Quarter: 2013Q3

REPORT INFORMATION
  Report Type: Spontaneous
  Country: AU (occurrence: AU)
  Receive Date: 20130909
  Receipt Date: 20130909
  Transmission Date: 20140515
  Serious: Yes (Other)
  Sender: FDA-Public Use
  Company Number: AU-PFIZER INC-2013244352

PATIENT
  Age: 47 Year
  Sex: Female
  Weight: 70 kg

DRUGS (2)
  1. CELECOXIB [Suspect]
     Dosage: 200 MG, SINGLE
     Route: 048
     Dates: start: 20130307, end: 20130307
  2. CELECOXIB [Suspect]
     Dosage: 100MG DAILY
     Route: 048

REACTIONS (3)
  - Gastric disorder [Recovered/Resolved]
  - Hyperhidrosis [Recovered/Resolved]
  - Palpitations [Recovered/Resolved]
